FAERS Safety Report 8142641-4 (Version None)
Quarter: 2012Q1

REPORT INFORMATION
  Report Type: 
  Country: None (occurrence: None)
  Receive Date: 20120216
  Receipt Date: 20120210
  Transmission Date: 20120608
  Serious: Yes (Life-Threatening, Other)
  Sender: FDA-Public Use
  Company Number: US-ASTRAZENECA-2009SE07267

PATIENT
  Age: 74 Year
  Sex: Female

DRUGS (10)
  1. TRAMADOL HCL [Concomitant]
  2. PULMICORT-100 [Suspect]
     Indication: ASTHMA
     Route: 055
  3. PULMICORT-100 [Suspect]
     Route: 055
  4. HYDROCODONE [Concomitant]
  5. IBUPROFEN [Concomitant]
  6. ACETAMINOPHEN [Concomitant]
  7. SEDIA [Concomitant]
     Indication: BLOOD CHOLESTEROL ABNORMAL
  8. DARVON [Concomitant]
  9. PULMICORT-100 [Suspect]
     Dosage: TWICE A DAY
     Route: 055
  10. AZMACORT [Concomitant]

REACTIONS (55)
  - BLOOD TEST ABNORMAL [None]
  - CHILLS [None]
  - HYPERPHAGIA [None]
  - HYPOTHYROIDISM [None]
  - FATIGUE [None]
  - HEAD INJURY [None]
  - CHEST DISCOMFORT [None]
  - GASTRIC DISORDER [None]
  - ANXIETY [None]
  - OROPHARYNGITIS FUNGAL [None]
  - FALL [None]
  - RESPIRATORY DISORDER [None]
  - WEIGHT DECREASED [None]
  - MALAISE [None]
  - PRURITUS [None]
  - ROAD TRAFFIC ACCIDENT [None]
  - LACRIMATION INCREASED [None]
  - NASAL DRYNESS [None]
  - RHINORRHOEA [None]
  - PHARYNGITIS STREPTOCOCCAL [None]
  - OROPHARYNGEAL PAIN [None]
  - RASH [None]
  - BRAIN INJURY [None]
  - BLOOD SODIUM DECREASED [None]
  - DISTURBANCE IN ATTENTION [None]
  - COUGH [None]
  - ERYTHEMA [None]
  - CHOKING [None]
  - MYCOTIC ALLERGY [None]
  - DIZZINESS [None]
  - AMNESIA [None]
  - PYREXIA [None]
  - GLAUCOMA [None]
  - SKIN DEGENERATIVE DISORDER [None]
  - FLATULENCE [None]
  - DECREASED APPETITE [None]
  - OESOPHAGEAL PAIN [None]
  - HYPERSENSITIVITY [None]
  - DYSPHONIA [None]
  - APPARENT DEATH [None]
  - CATARACT [None]
  - THYROID DISORDER [None]
  - NERVE COMPRESSION [None]
  - TINEA INFECTION [None]
  - PAIN [None]
  - DRUG DOSE OMISSION [None]
  - ANEURYSM [None]
  - ARTHRITIS [None]
  - ROTATOR CUFF SYNDROME [None]
  - URINARY TRACT INFECTION [None]
  - POLLAKIURIA [None]
  - DYSPEPSIA [None]
  - MULTIPLE ALLERGIES [None]
  - BLOOD GLUCOSE INCREASED [None]
  - TINNITUS [None]
